FAERS Safety Report 6400607-6 (Version None)
Quarter: 2009Q4

REPORT INFORMATION
  Report Type: 
  Country: None (occurrence: None)
  Receive Date: 20091014
  Receipt Date: 20091002
  Transmission Date: 20100525
  Serious: Yes (Other)
  Sender: FDA-Public Use
  Company Number: PHBS2007FI16692

PATIENT
  Sex: Male

DRUGS (7)
  1. ACLASTA [Suspect]
     Indication: OSTEOPOROSIS
     Dosage: 5 MG, UNK
     Dates: start: 20070831
  2. PROTELOS (STRONTIUM RANELATE) [Concomitant]
     Indication: OSTEOPOROSIS
     Dosage: 2 G/DAY
     Dates: start: 20070101
  3. NEUROTOL [Concomitant]
     Indication: EPILEPSY
     Dosage: 200 TO 800 MG/DAY
     Dates: start: 20050101
  4. NEUROTOL [Concomitant]
     Indication: RESTLESSNESS
  5. LEVOTHYROXINE SODIUM [Concomitant]
     Indication: THYROID DISORDER
  6. CALCIUM [Concomitant]
  7. VITAMIN D [Concomitant]

REACTIONS (9)
  - DRY SKIN [None]
  - ERYTHEMA [None]
  - FALL [None]
  - HYPOCALCAEMIA [None]
  - INFLUENZA LIKE ILLNESS [None]
  - MYALGIA [None]
  - PRURITUS [None]
  - SPINAL COMPRESSION FRACTURE [None]
  - SPINAL SUPPORT [None]
